FAERS Safety Report 19134859 (Version 1)
Quarter: 2021Q2

REPORT INFORMATION
  Report Type: Report from Study
  Country: AR (occurrence: AR)
  Receive Date: 20210414
  Receipt Date: 20210414
  Transmission Date: 20210717
  Serious: Yes (Other)
  Sender: FDA-Public Use
  Company Number: NVSC2021AR083451

PATIENT
  Age: 53 Year
  Sex: Male

DRUGS (1)
  1. MYFORTIC [Suspect]
     Active Substance: MYCOPHENOLATE SODIUM
     Indication: IMMUNOSUPPRESSION
     Dosage: 1440 MG, QD
     Route: 047
     Dates: start: 20190316

REACTIONS (2)
  - Incorrect route of product administration [Unknown]
  - Transplant rejection [Recovering/Resolving]

NARRATIVE: CASE EVENT DATE: 20190316
